FAERS Safety Report 4578797-X (Version None)
Quarter: 2005Q1

REPORT INFORMATION
  Report Type: 
  Country: None (occurrence: None)
  Receive Date: 20050209
  Receipt Date: 20050209
  Transmission Date: 20050727
  Serious: No
  Sender: FDA-Public Use
  Company Number: None

PATIENT
  Sex: Male

DRUGS (1)
  1. GABAPENTIN [Suspect]
     Indication: CONVULSION
     Dosage: 200 MG AM NOON 4P 1200MG AT HS

REACTIONS (1)
  - PHARMACEUTICAL PRODUCT COMPLAINT [None]
